FAERS Safety Report 16950669 (Version 2)
Quarter: 2019Q4

REPORT INFORMATION
  Report Type: Spontaneous
  Country: US (occurrence: US)
  Receive Date: 20191023
  Receipt Date: 20191107
  Transmission Date: 20200122
  Serious: Yes (Other)
  Sender: FDA-Public Use
  Company Number: US-ACCORD-158442

PATIENT
  Age: 73 Year
  Sex: Female

DRUGS (2)
  1. PEMETREXED. [Suspect]
     Active Substance: PEMETREXED
     Indication: NON-SMALL CELL LUNG CANCER STAGE IV
     Dosage: THREE CYCLES OF CHEMOTHERAPY
  2. CARBOPLATIN. [Suspect]
     Active Substance: CARBOPLATIN
     Indication: NON-SMALL CELL LUNG CANCER STAGE IV
     Dosage: THREE CYCLES OF CHEMOTHERAPY

REACTIONS (4)
  - Fatigue [Unknown]
  - Off label use [Unknown]
  - Bone marrow failure [Unknown]
  - Nephropathy [Unknown]
